FAERS Safety Report 16065299 (Version 1)
Quarter: 2019Q1

REPORT INFORMATION
  Report Type: Report from Study
  Country: GB (occurrence: FR)
  Receive Date: 20190313
  Receipt Date: 20190313
  Transmission Date: 20190418
  Serious: Yes (Life-Threatening, Hospitalization, Other)
  Sender: FDA-Public Use
  Company Number: GB-ACCORD-111997

PATIENT
  Age: 68 Year
  Sex: Male

DRUGS (5)
  1. FLUOROURACIL. [Suspect]
     Active Substance: FLUOROURACIL
     Indication: ANAL SQUAMOUS CELL CARCINOMA
     Dosage: ALSO RECEIVED INTRAVENOUS DRIP (3200 MG) FROM 20-NOV-2017 TO 18-DEC-2017, 83200 MG, EVERY ONE CYCLE
     Route: 040
     Dates: start: 20171120, end: 20171218
  2. PANITUMUMAB [Suspect]
     Active Substance: PANITUMUMAB
     Indication: ANAL SQUAMOUS CELL CARCINOMA
     Dosage: 246 MG, EVERY ONE CYCLE
     Route: 065
     Dates: start: 20171120
  3. XATRAL [Concomitant]
     Active Substance: ALFUZOSIN
     Dosage: UNK
     Route: 065
  4. AMETYCINE [Suspect]
     Active Substance: MITOMYCIN
     Indication: ANAL SQUAMOUS CELL CARCINOMA
     Dosage: 20 MG, EVERY ONE CYCLE
     Route: 065
     Dates: start: 20171120, end: 20171218
  5. NOREPINEPHRINE. [Concomitant]
     Active Substance: NOREPINEPHRINE
     Dosage: UNK
     Route: 065
     Dates: end: 20180119

REACTIONS (1)
  - Septic shock [Recovered/Resolved with Sequelae]

NARRATIVE: CASE EVENT DATE: 20180112
